FAERS Safety Report 14971716 (Version 2)
Quarter: 2018Q4

REPORT INFORMATION
  Report Type: Spontaneous
  Country: JP (occurrence: JP)
  Receive Date: 20180604
  Receipt Date: 20181023
  Transmission Date: 20190204
  Serious: Yes (Death)
  Sender: FDA-Public Use
  Company Number: JP-AMGEN-JPNSP2018075060

PATIENT
  Age: 66 Year
  Sex: Male

DRUGS (6)
  1. KYPROLIS [Suspect]
     Active Substance: CARFILZOMIB
     Indication: PLASMA CELL MYELOMA
     Dosage: 28.74 MG/M2, UNK
     Route: 041
     Dates: start: 20161101, end: 20161102
  2. DEXAMETHASONE. [Concomitant]
     Active Substance: DEXAMETHASONE
     Dosage: UNK
     Dates: start: 20161122
  3. FAMVIR [Concomitant]
     Active Substance: FAMCICLOVIR
     Dosage: UNK
     Dates: end: 20161125
  4. LENALIDOMIDE [Concomitant]
     Active Substance: LENALIDOMIDE
     Dosage: UNK
     Dates: start: 20161101, end: 20161121
  5. KYPROLIS [Suspect]
     Active Substance: CARFILZOMIB
     Dosage: 38.799 MG/M2, UNK
     Route: 041
     Dates: start: 20161115, end: 20161116
  6. KYPROLIS [Suspect]
     Active Substance: CARFILZOMIB
     Dosage: 38.799 MG/M2, UNK
     Route: 041
     Dates: start: 20161108, end: 20161109

REACTIONS (1)
  - Platelet count decreased [Unknown]

NARRATIVE: CASE EVENT DATE: 201611
